FAERS Safety Report 4951508-1 (Version None)
Quarter: 2006Q1

REPORT INFORMATION
  Report Type: 
  Country: None (occurrence: None)
  Receive Date: 20060317
  Receipt Date: 20060301
  Transmission Date: 20060701
  Serious: Yes (Hospitalization)
  Sender: FDA-Public Use
  Company Number: US_0509122445

PATIENT
  Age: 52 Year
  Sex: Male
  Weight: 95.7 kg

DRUGS (7)
  1. ZYPREXA [Suspect]
     Dosage: SEE IMAGE
     Dates: start: 20000101, end: 20010101
  2. ZYPREXA [Suspect]
     Dosage: SEE IMAGE
     Dates: start: 20021102, end: 20030501
  3. EFFEXOR [Concomitant]
  4. BUSPIRONE HCL [Concomitant]
  5. PLAVIX [Concomitant]
  6. VERAPAMIL - SLOW RELEASE (VERAPAMIL HYDROCHLORIDE) [Concomitant]
  7. ACARBOSE [Concomitant]

REACTIONS (9)
  - BLOOD TRIGLYCERIDES INCREASED [None]
  - CEREBROVASCULAR ACCIDENT [None]
  - DEPRESSION [None]
  - DIABETES MELLITUS NON-INSULIN-DEPENDENT [None]
  - GLYCOSYLATED HAEMOGLOBIN INCREASED [None]
  - MOOD SWINGS [None]
  - OBESITY [None]
  - SUICIDAL IDEATION [None]
  - WEIGHT DECREASED [None]
